FAERS Safety Report 13627022 (Version 1)
Quarter: 2017Q2

REPORT INFORMATION
  Report Type: Spontaneous
  Country: DE (occurrence: DE)
  Receive Date: 20170607
  Receipt Date: 20170607
  Transmission Date: 20170830
  Serious: Yes (Hospitalization, Other)
  Sender: FDA-Public Use
  Company Number: DE-DRREDDYS-GER/GER/17/0091164

PATIENT
  Age: 65 Year
  Sex: Female

DRUGS (10)
  1. QUETIAPINE. [Interacting]
     Active Substance: QUETIAPINE
     Route: 048
     Dates: start: 20160828, end: 20160906
  2. MIRTAZAPINE. [Interacting]
     Active Substance: MIRTAZAPINE
     Indication: MAJOR DEPRESSION
     Route: 048
     Dates: start: 20160724, end: 20160827
  3. SEROQUEL XR [Interacting]
     Active Substance: QUETIAPINE FUMARATE
     Indication: MAJOR DEPRESSION
     Route: 048
     Dates: start: 20160724, end: 20160726
  4. QUETIAPINE. [Suspect]
     Active Substance: QUETIAPINE
     Indication: MAJOR DEPRESSION
     Route: 048
     Dates: start: 20160808, end: 20160813
  5. QUETIAPINE. [Interacting]
     Active Substance: QUETIAPINE
     Route: 048
     Dates: start: 20160814, end: 20160827
  6. QUETIAPINE. [Interacting]
     Active Substance: QUETIAPINE
     Route: 048
     Dates: start: 20160920
  7. QUETIAPINE. [Interacting]
     Active Substance: QUETIAPINE
     Route: 048
     Dates: start: 20160907, end: 20160919
  8. MIRTAZAPINE. [Interacting]
     Active Substance: MIRTAZAPINE
     Route: 048
     Dates: start: 20160828, end: 20160906
  9. MIRTAZAPINE. [Interacting]
     Active Substance: MIRTAZAPINE
     Route: 048
     Dates: start: 20160907, end: 20160910
  10. SEROQUEL XR [Interacting]
     Active Substance: QUETIAPINE FUMARATE
     Route: 048
     Dates: start: 20160727, end: 20160807

REACTIONS (2)
  - Leukopenia [Recovered/Resolved]
  - Drug interaction [Unknown]

NARRATIVE: CASE EVENT DATE: 20160809
